FAERS Safety Report 9196189 (Version 3)
Quarter: 2013Q2

REPORT INFORMATION
  Report Type: Spontaneous
  Country: BR (occurrence: BR)
  Receive Date: 20130328
  Receipt Date: 20130426
  Transmission Date: 20140414
  Serious: Yes (Hospitalization, Other)
  Sender: FDA-Public Use
  Company Number: BR-JNJFOC-20130311750

PATIENT
  Age: 26 Year
  Sex: Male

DRUGS (8)
  1. HALDOL [Suspect]
     Indication: BIPOLAR DISORDER
     Dosage: DOSAGE: 0.5
     Route: 065
  2. HALDOL [Suspect]
     Indication: BIPOLAR DISORDER
     Route: 065
  3. RISPERDAL [Suspect]
     Indication: PRODUCT USED FOR UNKNOWN INDICATION
     Route: 065
  4. LITHIUM [Suspect]
     Indication: BIPOLAR DISORDER
     Dosage: DOSAGE: 0.5
     Route: 065
  5. BIPERIDEN [Suspect]
     Indication: BIPOLAR DISORDER
     Dosage: DOSAGE: 0.5
     Route: 065
  6. BIPERIDEN [Suspect]
     Indication: BIPOLAR DISORDER
     Dosage: DOSAGE: 0.5
     Route: 065
  7. TRIHEXYPHENIDYL [Concomitant]
     Route: 065
  8. CLONAZEPAM [Concomitant]
     Route: 065

REACTIONS (2)
  - Dystonia [Not Recovered/Not Resolved]
  - Condition aggravated [Unknown]
